FAERS Safety Report 11088934 (Version 2)
Quarter: 2015Q2

REPORT INFORMATION
  Report Type: Spontaneous
  Country: US (occurrence: US)
  Receive Date: 20150504
  Receipt Date: 20150511
  Transmission Date: 20150821
  Serious: Yes (Life-Threatening, Hospitalization, Other)
  Sender: FDA-Public Use
  Company Number: CHPA2015US005802

PATIENT
  Age: 60 Year
  Sex: Female

DRUGS (1)
  1. VOLTAREN [Suspect]
     Active Substance: DICLOFENAC SODIUM
     Indication: LIGAMENT SPRAIN
     Dosage: 2 G, TID
     Route: 061
     Dates: start: 20150116, end: 20150116

REACTIONS (15)
  - Incontinence [Recovered/Resolved]
  - Dysarthria [Recovering/Resolving]
  - Amnesia [Recovering/Resolving]
  - Malaise [Not Recovered/Not Resolved]
  - Vomiting [Recovered/Resolved]
  - Eye movement disorder [Recovered/Resolved]
  - Faecal incontinence [Recovered/Resolved]
  - Skull fracture [Recovered/Resolved]
  - Mobility decreased [Recovering/Resolving]
  - Ageusia [Not Recovered/Not Resolved]
  - Weight decreased [Unknown]
  - Cerebral haemorrhage [Recovered/Resolved]
  - Seizure [Recovered/Resolved]
  - Anosmia [Not Recovered/Not Resolved]
  - Product use issue [Unknown]

NARRATIVE: CASE EVENT DATE: 20150116
